FAERS Safety Report 12763160 (Version 2)
Quarter: 2016Q3

REPORT INFORMATION
  Report Type: Spontaneous
  Country: US (occurrence: US)
  Receive Date: 20160920
  Receipt Date: 20160921
  Transmission Date: 20161109
  Serious: No
  Sender: FDA-Public Use
  Company Number: US-009507513-1609USA009067

PATIENT
  Sex: Female

DRUGS (1)
  1. NEXPLANON [Suspect]
     Active Substance: ETONOGESTREL
     Indication: MENSTRUAL CYCLE MANAGEMENT
     Dosage: UNK
     Route: 059
     Dates: start: 2015

REACTIONS (4)
  - Menorrhagia [Unknown]
  - Complication associated with device [Unknown]
  - Device breakage [Unknown]
  - Off label use [Unknown]

NARRATIVE: CASE EVENT DATE: 2015
